FAERS Safety Report 5085495-5 (Version None)
Quarter: 2006Q3

REPORT INFORMATION
  Report Type: 
  Country: None (occurrence: None)
  Receive Date: 20060822
  Receipt Date: 20060808
  Transmission Date: 20061208
  Serious: Yes (Hospitalization)
  Sender: FDA-Public Use
  Company Number: PHBS2006DE12011

PATIENT
  Age: 64 Year
  Sex: Male

DRUGS (1)
  1. CYCLOSPORINE [Suspect]
     Indication: LIVER TRANSPLANT
     Dosage: 50 MG, BID
     Route: 065

REACTIONS (8)
  - ANAEMIA [None]
  - AUTOIMMUNE HEPATITIS [None]
  - BILIARY TRACT DISORDER [None]
  - COLITIS ULCERATIVE [None]
  - CYTOMEGALOVIRUS HEPATITIS [None]
  - INFLAMMATORY BOWEL DISEASE [None]
  - RECTAL HAEMORRHAGE [None]
  - TRANSPLANT REJECTION [None]
